FAERS Safety Report 4426386-X (Version None)
Quarter: 2004Q3

REPORT INFORMATION
  Report Type: 
  Country: None (occurrence: None)
  Receive Date: 20040811
  Receipt Date: 20040625
  Transmission Date: 20050211
  Serious: Yes (Hospitalization)
  Sender: FDA-Public Use
  Company Number: B0270512A

PATIENT
  Age: 75 Year
  Sex: Male
  Weight: 69.8539 kg

DRUGS (2)
  1. TEMOVATE [Suspect]
     Indication: PRURITUS
     Dosage: SEE DOSAGE TEXT/TOPICAL
     Route: 061
     Dates: start: 20000630
  2. PSORALENS + ULTRAVIOLET A [Concomitant]

REACTIONS (6)
  - AMYOTROPHY [None]
  - DIABETES MELLITUS [None]
  - DISEASE PROGRESSION [None]
  - FALL [None]
  - PRURITUS [None]
  - WEIGHT DECREASED [None]
